FAERS Safety Report 10715086 (Version 2)
Quarter: 2015Q1

REPORT INFORMATION
  Report Type: Spontaneous
  Country: US (occurrence: US)
  Receive Date: 20150115
  Receipt Date: 20150121
  Transmission Date: 20150721
  Serious: Yes (Hospitalization, Other)
  Sender: FDA-Public Use
  Company Number: US-GLAXOSMITHKLINE-US2015004216

PATIENT
  Sex: Female

DRUGS (6)
  1. PROMACTA [Suspect]
     Active Substance: ELTROMBOPAG OLAMINE
     Indication: PLATELET COUNT DECREASED
     Dosage: 75 MG, QD
     Route: 048
     Dates: start: 20110324
  2. LEVOTHYROXINE [Concomitant]
     Active Substance: LEVOTHYROXINE
  3. VITAMIN B12 [Concomitant]
     Active Substance: CYANOCOBALAMIN
  4. PROMACTA [Suspect]
     Active Substance: ELTROMBOPAG OLAMINE
     Indication: IMMUNE THROMBOCYTOPENIC PURPURA
  5. OMEPRAZOLE. [Concomitant]
     Active Substance: OMEPRAZOLE
  6. VITAMIN D3 [Concomitant]
     Active Substance: CHOLECALCIFEROL

REACTIONS (5)
  - Asthenia [Recovering/Resolving]
  - Liver function test abnormal [Unknown]
  - Drug hypersensitivity [Unknown]
  - Yellow skin [Recovering/Resolving]
  - Cerebrovascular accident [Unknown]

NARRATIVE: CASE EVENT DATE: 2012
